FAERS Safety Report 7409156-X (Version None)
Quarter: 2011Q2

REPORT INFORMATION
  Report Type: 
  Country: None (occurrence: None)
  Receive Date: 20110412
  Receipt Date: 20110405
  Transmission Date: 20111010
  Serious: Yes (Other)
  Sender: FDA-Public Use
  Company Number: US-AMGEN-USASP2011017970

PATIENT
  Age: 49 Year
  Sex: Female

DRUGS (2)
  1. ENBREL [Suspect]
     Indication: PSORIASIS
     Dosage: 50 MG, QWK
     Dates: start: 19990101
  2. ENBREL [Suspect]
     Indication: PSORIATIC ARTHROPATHY

REACTIONS (13)
  - FALL [None]
  - WRIST FRACTURE [None]
  - MOBILITY DECREASED [None]
  - HAND FRACTURE [None]
  - JOINT EFFUSION [None]
  - SKULL FRACTURE [None]
  - JOINT SWELLING [None]
  - OSTEOPOROSIS [None]
  - ARTHROPATHY [None]
  - PSORIASIS [None]
  - BONE DISORDER [None]
  - STRESS [None]
  - ARTHRALGIA [None]
